FAERS Safety Report 6498304-4 (Version None)
Quarter: 2009Q4

REPORT INFORMATION
  Report Type: 
  Country: None (occurrence: None)
  Receive Date: 20091127
  Receipt Date: 20090810
  Transmission Date: 20100525
  Serious: Yes (Hospitalization)
  Sender: FDA-Public Use
  Company Number: 287943

PATIENT
  Age: 56 Year
  Sex: Female
  Weight: 56.7 kg

DRUGS (5)
  1. NOVOLOG [Suspect]
     Indication: TYPE 1 DIABETES MELLITUS
     Dosage: 15, 16, OR 20 IU EVERY 3 HOURS, SUBCUTAN.-PUMP; 7 IU, SINGLE, SUBCUTAN.-PUMP
     Route: 058
     Dates: start: 20090602, end: 20090602
  2. LOPRESSOR [Concomitant]
  3. CLONIDINE [Concomitant]
  4. URSODIOL [Concomitant]
  5. THYROID THERAPY [Concomitant]

REACTIONS (2)
  - BLOOD GLUCOSE INCREASED [None]
  - DRUG INEFFECTIVE [None]
